FAERS Safety Report 9325015 (Version 6)
Quarter: 2014Q3

REPORT INFORMATION
  Report Type: Spontaneous
  Country: US (occurrence: US)
  Receive Date: 20130603
  Receipt Date: 20140711
  Transmission Date: 20150326
  Serious: Yes (Hospitalization, Other)
  Sender: FDA-Public Use
  Company Number: US-009507513-1305USA018022

PATIENT
  Sex: Female
  Weight: 63.49 kg

DRUGS (5)
  1. NUVARING [Suspect]
     Active Substance: ETHINYL ESTRADIOL\ETONOGESTREL
     Indication: POLYCYSTIC OVARIES
  2. PONSTEL [Concomitant]
     Active Substance: MEFENAMIC ACID
     Indication: DYSMENORRHOEA
  3. NUVARING [Suspect]
     Active Substance: ETHINYL ESTRADIOL\ETONOGESTREL
     Indication: MENSTRUAL DISORDER
  4. NUVARING [Suspect]
     Active Substance: ETHINYL ESTRADIOL\ETONOGESTREL
     Indication: CONTRACEPTION
     Dosage: ONCE A MONTH FOR 3 WKS, THEN OUT FOR 1 WK
     Route: 067
     Dates: start: 2005, end: 2009
  5. NUVARING [Suspect]
     Active Substance: ETHINYL ESTRADIOL\ETONOGESTREL
     Indication: DYSMENORRHOEA

REACTIONS (17)
  - Headache [Unknown]
  - Concussion [Unknown]
  - Endometriosis [Unknown]
  - Mental disorder [Unknown]
  - Arthropod bite [Unknown]
  - Deep vein thrombosis [Unknown]
  - Pulmonary embolism [Recovered/Resolved]
  - Off label use [Unknown]
  - Syncope [Unknown]
  - Surgery [Unknown]
  - Gastric disorder [Unknown]
  - Abnormal loss of weight [Unknown]
  - Thrombosis [Unknown]
  - Plantar fasciitis [Unknown]
  - Stress [Unknown]
  - Headache [Unknown]
  - Anxiety [Unknown]

NARRATIVE: CASE EVENT DATE: 2005
